FAERS Safety Report 9455538 (Version 1)
Quarter: 2013Q3

REPORT INFORMATION
  Report Type: Spontaneous
  Country: US (occurrence: US)
  Receive Date: 20130813
  Receipt Date: 20130813
  Transmission Date: 20140515
  Serious: No
  Sender: FDA-Public Use
  Company Number: US-PFIZER INC-2013202884

PATIENT
  Age: 58 Year
  Sex: Female

DRUGS (7)
  1. NITROSTAT [Suspect]
     Dosage: 0.4 MG, AS NEEDED
     Route: 060
  2. LISINOPRIL [Concomitant]
     Dosage: 20 MG, 1X/DAY
     Route: 048
  3. PRAVASTATIN SODIUM [Concomitant]
     Dosage: 40 MG, 1X/DAY
     Route: 048
  4. CARVEDILOL [Concomitant]
     Dosage: 6.25 MG, 2X/DAY
     Route: 048
  5. VENTOLINE [Concomitant]
     Dosage: 2 PUFFS DAILY
  6. ASPIRIN [Concomitant]
     Dosage: 81 MG, 1X/DAY
     Route: 048
  7. PLAVIX [Concomitant]
     Dosage: 75 MG, 1X/DAY
     Route: 048

REACTIONS (1)
  - Drug hypersensitivity [Unknown]
